FAERS Safety Report 12880230 (Version 2)
Quarter: 2016Q4

REPORT INFORMATION
  Report Type: Spontaneous
  Country: NO (occurrence: NO)
  Receive Date: 20161025
  Receipt Date: 20161103
  Transmission Date: 20170207
  Serious: Yes (Death, Hospitalization)
  Sender: FDA-Public Use
  Company Number: PHHY2016NO143116

PATIENT
  Age: 53 Year
  Sex: Male
  Weight: 160 kg

DRUGS (7)
  1. COSENTYX [Suspect]
     Active Substance: SECUKINUMAB
     Dosage: 300 MG, QW
     Route: 065
     Dates: start: 20160413
  2. COSENTYX [Suspect]
     Active Substance: SECUKINUMAB
     Indication: PSORIASIS
     Dosage: 300 MG/WEEK FOR 5 WEEKS, THEN 300 MG/MONTH
     Route: 065
     Dates: start: 20160330
  3. COSENTYX [Suspect]
     Active Substance: SECUKINUMAB
     Dosage: 300 MG, QW
     Route: 065
     Dates: start: 20160406
  4. COSENTYX [Suspect]
     Active Substance: SECUKINUMAB
     Dosage: 300 MG, QW
     Route: 065
     Dates: start: 20160428, end: 20160428
  5. METFORMIN [Concomitant]
     Active Substance: METFORMIN HYDROCHLORIDE
     Indication: TYPE 2 DIABETES MELLITUS
     Route: 065
  6. COSENTYX [Suspect]
     Active Substance: SECUKINUMAB
     Dosage: 300 MG, QW
     Route: 065
     Dates: start: 20160420
  7. DIOVAN [Concomitant]
     Active Substance: VALSARTAN
     Indication: HYPERTENSION
     Route: 065

REACTIONS (10)
  - Infection [Unknown]
  - Pneumonia [Fatal]
  - Sepsis [Unknown]
  - Multiple organ dysfunction syndrome [Fatal]
  - Oesophageal varices haemorrhage [Fatal]
  - Haematemesis [Fatal]
  - Thrombosis [Unknown]
  - Renal failure [Fatal]
  - Influenza [Unknown]
  - Pulmonary haemorrhage [Fatal]

NARRATIVE: CASE EVENT DATE: 20160502
